FAERS Safety Report 9170305 (Version 1)
Quarter: 2013Q1

REPORT INFORMATION
  Report Type: Spontaneous
  Country: CA (occurrence: None)
  Receive Date: 20130308
  Receipt Date: 20130308
  Transmission Date: 20140127
  Serious: Yes (Disabling)
  Sender: FDA-Public Use
  Company Number: SYM-2013-01411

PATIENT
  Age: 38 Year
  Sex: Female

DRUGS (2)
  1. ZYBAN (BUPROPION HYDROCHLORIDE) [Suspect]
     Indication: SMOKING CESSATION THERAPY
     Route: 048
     Dates: start: 20100427
  2. WEIGHT LOSS MEDICATION (ALL OTHER THERAPEUTIC PRODUCT) [Concomitant]

REACTIONS (6)
  - Intraventricular haemorrhage [None]
  - Hydrocephalus [None]
  - Cardiovascular disorder [None]
  - Blood pressure increased [None]
  - Brain injury [None]
  - Cerebral haemorrhage [None]
